FAERS Safety Report 26021109 (Version 1)
Quarter: 2025Q4

REPORT INFORMATION
  Report Type: Spontaneous
  Country: US (occurrence: US)
  Receive Date: 20251110
  Receipt Date: 20251110
  Transmission Date: 20260118
  Serious: Yes (Other)
  Sender: ELI LILLY AND COMPANY
  Company Number: US-ELI_LILLY_AND_COMPANY-US202511003072

PATIENT
  Age: 79 Year
  Sex: Female

DRUGS (1)
  1. KISUNLA [Suspect]
     Active Substance: DONANEMAB-AZBT
     Indication: Dementia
     Dosage: UNK UNK, UNKNOWN
     Route: 065
     Dates: start: 202410, end: 20250924

REACTIONS (6)
  - Deafness [Unknown]
  - Confusional state [Unknown]
  - Fatigue [Unknown]
  - Hypersomnia [Unknown]
  - Pyrexia [Unknown]
  - Drug effect less than expected [Unknown]

NARRATIVE: CASE EVENT DATE: 20251020
